FAERS Safety Report 13892112 (Version 2)
Quarter: 2017Q3

REPORT INFORMATION
  Report Type: Report from Study
  Country: US (occurrence: US)
  Receive Date: 20170822
  Receipt Date: 20170901
  Transmission Date: 20171127
  Serious: Yes (Hospitalization)
  Sender: FDA-Public Use
  Company Number: US-JNJFOC-20170816285

PATIENT
  Age: 84 Year
  Sex: Male

DRUGS (2)
  1. IXEKIZUMAB [Concomitant]
     Active Substance: IXEKIZUMAB
     Route: 065
     Dates: start: 201611
  2. USTEKINUMAB [Suspect]
     Active Substance: USTEKINUMAB
     Indication: PSORIASIS
     Route: 058
     Dates: start: 201504, end: 201504

REACTIONS (1)
  - Bladder transitional cell carcinoma recurrent [Recovered/Resolved]

NARRATIVE: CASE EVENT DATE: 20161013
